FAERS Safety Report 7138357-3 (Version None)
Quarter: 2010Q4

REPORT INFORMATION
  Report Type: 
  Country: None (occurrence: None)
  Receive Date: 20101206
  Receipt Date: 20101123
  Transmission Date: 20110411
  Serious: Yes (Hospitalization)
  Sender: FDA-Public Use
  Company Number: GXKR2010GB13300

PATIENT
  Age: 72 Year
  Sex: Male

DRUGS (4)
  1. FLUOROURACIL [Suspect]
     Indication: RECTAL CANCER
     Dosage: UNK
     Route: 042
     Dates: start: 20100617
  2. FOLINIC ACID (NGX) [Suspect]
     Indication: RECTAL CANCER
     Dosage: UNK
     Route: 042
     Dates: start: 20100617
  3. AVASTIN [Suspect]
     Indication: RECTAL CANCER
     Dosage: 350 MG, UNK
     Route: 042
     Dates: start: 20100617, end: 20100812
  4. OXALIPLATIN [Suspect]
     Indication: RECTAL CANCER
     Dosage: 150 MG, UNK
     Route: 042
     Dates: start: 20100617

REACTIONS (4)
  - HAEMORRHAGIC ANAEMIA [None]
  - HYPERTENSION [None]
  - RECTAL HAEMORRHAGE [None]
  - TUMOUR HAEMORRHAGE [None]
